FAERS Safety Report 6973996-1 (Version None)
Quarter: 2010Q3

REPORT INFORMATION
  Report Type: 
  Country: None (occurrence: None)
  Receive Date: 20100907
  Receipt Date: 20100826
  Transmission Date: 20110219
  Serious: Yes (Other)
  Sender: FDA-Public Use
  Company Number: 2010MA002042

PATIENT
  Age: 31 Year
  Sex: Female

DRUGS (3)
  1. LORAZEPAM [Suspect]
     Indication: MANIA
     Dosage: 2.5 MG; PO
     Route: 048
  2. OLANZAPINE [Suspect]
     Indication: MANIA
     Dosage: 15 MG; PO
     Route: 048
  3. ZOPICLONE [Concomitant]

REACTIONS (9)
  - BLOOD GLUCOSE INCREASED [None]
  - BREATH SOUNDS ABNORMAL [None]
  - FALL [None]
  - HYPOTENSION [None]
  - LOSS OF CONSCIOUSNESS [None]
  - MIOSIS [None]
  - NO THERAPEUTIC RESPONSE [None]
  - STRABISMUS [None]
  - SYNCOPE [None]
